FAERS Safety Report 11991508 (Version 3)
Quarter: 2017Q2

REPORT INFORMATION
  Report Type: Spontaneous
  Country: US (occurrence: US)
  Receive Date: 20160203
  Receipt Date: 20170630
  Transmission Date: 20170829
  Serious: No
  Sender: FDA-Public Use
  Company Number: US-JNJFOC-20160106735

PATIENT
  Age: 28 Year
  Sex: Male

DRUGS (5)
  1. RISPERDAL [Suspect]
     Active Substance: RISPERIDONE
     Indication: SCHIZOPHRENIA
     Dosage: 1 - 3 MG
     Route: 048
     Dates: start: 20000403, end: 20010427
  2. RISPERDAL [Suspect]
     Active Substance: RISPERIDONE
     Indication: SCHIZOPHRENIA
     Dosage: 1-3 MG
     Route: 048
     Dates: start: 20030609, end: 20041004
  3. RISPERDAL [Suspect]
     Active Substance: RISPERIDONE
     Indication: SCHIZOPHRENIA
     Dosage: 1-3 MG
     Route: 048
     Dates: start: 20011102, end: 20011130
  4. RISPERDAL [Suspect]
     Active Substance: RISPERIDONE
     Indication: SCHIZOPHRENIA
     Dosage: 1-3 MG
     Route: 048
     Dates: start: 20020201, end: 20030221
  5. RISPERDAL [Suspect]
     Active Substance: RISPERIDONE
     Indication: SCHIZOPHRENIA
     Dosage: 1-3 MG
     Route: 048
     Dates: start: 20050617, end: 20050908

REACTIONS (4)
  - Sleep disorder [Unknown]
  - Gynaecomastia [Unknown]
  - Treatment noncompliance [Unknown]
  - Obesity [Unknown]

NARRATIVE: CASE EVENT DATE: 20030303
